FAERS Safety Report 8534866-0 (Version None)
Quarter: 2012Q3

REPORT INFORMATION
  Report Type: 
  Country: None (occurrence: None)
  Receive Date: 20120724
  Receipt Date: 20120720
  Transmission Date: 20120928
  Serious: Yes (Other)
  Sender: FDA-Public Use
  Company Number: CHPA2012US015624

PATIENT
  Age: 85 Year
  Sex: Female

DRUGS (1)
  1. PREVACID 24 HR [Suspect]
     Indication: GASTROOESOPHAGEAL REFLUX DISEASE
     Dosage: 15 MG, QD
     Route: 048
     Dates: start: 20090101

REACTIONS (8)
  - CONCOMITANT DISEASE AGGRAVATED [None]
  - SINUSITIS [None]
  - OFF LABEL USE [None]
  - DYSPEPSIA [None]
  - TREATMENT NONCOMPLIANCE [None]
  - DRY MOUTH [None]
  - DEHYDRATION [None]
  - INCORRECT DRUG ADMINISTRATION DURATION [None]
